FAERS Safety Report 24026396 (Version 1)
Quarter: 2024Q2

REPORT INFORMATION
  Report Type: Spontaneous
  Country: NL (occurrence: NL)
  Receive Date: 20240628
  Receipt Date: 20240628
  Transmission Date: 20240715
  Serious: Yes (Hospitalization, Other)
  Sender: FDA-Public Use
  Company Number: NL-RK PHARMA, INC-20240600026

PATIENT

DRUGS (18)
  1. CARBAMAZEPINE [Interacting]
     Active Substance: CARBAMAZEPINE
     Indication: Schizoaffective disorder
     Dosage: 200 MILLIGRAM, BID
  2. CARBAMAZEPINE [Interacting]
     Active Substance: CARBAMAZEPINE
     Dosage: 600 MILLIGRAM
  3. CLOZAPINE [Interacting]
     Active Substance: CLOZAPINE
     Indication: Schizoaffective disorder
     Dosage: UNK
     Dates: start: 2005, end: 2018
  4. CLOZAPINE [Interacting]
     Active Substance: CLOZAPINE
     Dosage: UNK
     Dates: start: 2019
  5. CLOZAPINE [Interacting]
     Active Substance: CLOZAPINE
     Dosage: 600 MILLIGRAM, QD
  6. CLOZAPINE [Interacting]
     Active Substance: CLOZAPINE
     Dosage: 500 MILLIGRAM, QD
  7. CLOZAPINE [Interacting]
     Active Substance: CLOZAPINE
     Dosage: 550 MILLIGRAM, QD
  8. CLOZAPINE [Interacting]
     Active Substance: CLOZAPINE
     Dosage: 450 MILLIGRAM, QD
  9. HALOPERIDOL [Interacting]
     Active Substance: HALOPERIDOL
     Indication: Schizoaffective disorder
     Dosage: 225 MILLIGRAM, EVERY 2WEEKS
  10. HALOPERIDOL [Interacting]
     Active Substance: HALOPERIDOL
     Dosage: UNK
     Route: 048
  11. HALOPERIDOL [Interacting]
     Active Substance: HALOPERIDOL
     Dosage: UNK
     Route: 042
  12. GLYCOPYRRONIUM [Concomitant]
     Active Substance: GLYCOPYRRONIUM
     Dosage: 2 MILLIGRAM, HS
  13. LACTULOSE [Concomitant]
     Active Substance: LACTULOSE
     Indication: Constipation
     Dosage: 30 MILLILITER
  14. MEMANTINE [Concomitant]
     Active Substance: MEMANTINE
     Indication: Psychotic symptom
     Dosage: 20 MILLIGRAM
  15. LORAZEPAM [Concomitant]
     Active Substance: LORAZEPAM
     Dosage: UNK, PRN
  16. DROPERIDOL [Concomitant]
     Active Substance: DROPERIDOL
     Dosage: UNK, PRN
  17. FLUVOXAMINE [Interacting]
     Active Substance: FLUVOXAMINE
     Dosage: 25 MILLIGRAM, QD
  18. FLUVOXAMINE [Interacting]
     Active Substance: FLUVOXAMINE
     Dosage: 50 MILLIGRAM, QD

REACTIONS (2)
  - Ileus paralytic [Recovered/Resolved]
  - Drug interaction [Recovered/Resolved]
